FAERS Safety Report 7481538-X (Version None)
Quarter: 2011Q2

REPORT INFORMATION
  Report Type: 
  Country: None (occurrence: None)
  Receive Date: 20110516
  Receipt Date: 20110506
  Transmission Date: 20111010
  Serious: Yes (Hospitalization)
  Sender: FDA-Public Use
  Company Number: FR-ASTRAZENECA-2011SE27047

PATIENT
  Age: 33 Year
  Sex: Female

DRUGS (1)
  1. NAROPIN [Suspect]
     Indication: UMBILICAL HERNIA
     Route: 053
     Dates: start: 20110407

REACTIONS (4)
  - DISTURBANCE IN ATTENTION [None]
  - HYPOTENSION [None]
  - PRESYNCOPE [None]
  - ALTERED STATE OF CONSCIOUSNESS [None]
